FAERS Safety Report 5885340-1 (Version None)
Quarter: 2008Q3

REPORT INFORMATION
  Report Type: 
  Country: None (occurrence: None)
  Receive Date: 20080916
  Receipt Date: 20080904
  Transmission Date: 20090109
  Serious: Yes (Death, Other)
  Sender: FDA-Public Use
  Company Number: IN-PFIZER INC-2008074962

PATIENT
  Age: 40 Year
  Sex: Male
  Weight: 80 kg

DRUGS (1)
  1. CYCLOKAPRON (IV) [Suspect]
     Indication: INJURY
     Route: 042
     Dates: start: 20080808, end: 20080816

REACTIONS (3)
  - COLLAPSE OF LUNG [None]
  - DEATH [None]
  - TRAUMATIC HAEMATOMA [None]
